FAERS Safety Report 15999489 (Version 1)
Quarter: 2019Q1

REPORT INFORMATION
  Report Type: Spontaneous
  Country: US (occurrence: US)
  Receive Date: 20190222
  Receipt Date: 20190222
  Transmission Date: 20190418
  Serious: Yes (Life-Threatening, Other)
  Sender: FDA-Public Use
  Company Number: None

PATIENT
  Age: 46 Year
  Sex: Male
  Weight: 108 kg

DRUGS (1)
  1. LATUDA [Suspect]
     Active Substance: LURASIDONE HYDROCHLORIDE
     Indication: DEPRESSION
     Dosage: ?          QUANTITY:1 .5 TABLET ~= 60MG;OTHER FREQUENCY:WITH DINNER;?
     Route: 048
     Dates: start: 20190118, end: 20190222

REACTIONS (2)
  - Product communication issue [None]
  - Wrong technique in product usage process [None]

NARRATIVE: CASE EVENT DATE: 20190205
